FAERS Safety Report 7053874-2 (Version None)
Quarter: 2010Q4

REPORT INFORMATION
  Report Type: 
  Country: None (occurrence: None)
  Receive Date: 20101020
  Receipt Date: 20101008
  Transmission Date: 20110411
  Serious: Yes (Other)
  Sender: FDA-Public Use
  Company Number: FR-BRISTOL-MYERS SQUIBB COMPANY-15337082

PATIENT
  Age: 80 Year
  Sex: Female
  Weight: 42 kg

DRUGS (2)
  1. GLUCOPHAGE [Suspect]
     Indication: TYPE 2 DIABETES MELLITUS
     Route: 048
     Dates: start: 20100101, end: 20100201
  2. GLUCOR [Concomitant]
     Indication: TYPE 2 DIABETES MELLITUS
     Dosage: 2010:50MG,3 UNK:50MG,6
     Dates: start: 20100101

REACTIONS (5)
  - ALOPECIA [None]
  - DRUG PRESCRIBING ERROR [None]
  - LACTIC ACIDOSIS [None]
  - NAUSEA [None]
  - WEIGHT DECREASED [None]
